FAERS Safety Report 18665539 (Version 1)
Quarter: 2020Q4

REPORT INFORMATION
  Report Type: Report from Study
  Country: BE (occurrence: BE)
  Receive Date: 20201226
  Receipt Date: 20201226
  Transmission Date: 20210114
  Serious: Yes (Hospitalization)
  Sender: FDA-Public Use
  Company Number: BE-ROCHE-2737620

PATIENT
  Age: 71 Year
  Sex: Female

DRUGS (6)
  1. CARBOPLATIN. [Suspect]
     Active Substance: CARBOPLATIN
     Indication: PLEURAL MESOTHELIOMA MALIGNANT
     Dosage: DATE OF MOST RECENT DOSE  OF CARBOPLATIN ADMINISTRATION BEFORE SAE: 16/SEP/2020?4-6 CYCLES
     Route: 042
     Dates: start: 20200713
  2. ATEZOLIZUMAB. [Suspect]
     Active Substance: ATEZOLIZUMAB
     Indication: PLEURAL MESOTHELIOMA MALIGNANT
     Dosage: DATE OF MOST RECENT DOSE OF ATEZOLIZUMAB ADMIN. BEFORE SAE: 18/NOV/2018
     Route: 041
     Dates: start: 20200713
  3. KEPPRA [Concomitant]
     Active Substance: LEVETIRACETAM
  4. PEMETREXED. [Suspect]
     Active Substance: PEMETREXED
     Indication: PLEURAL MESOTHELIOMA MALIGNANT
     Dosage: DATE OF MOST RECENT DOSE OF PREMETREXED ADMINISTERED BEFORE SAE: 16/SEP/2020?4-6 CYCLES
     Route: 042
     Dates: start: 20200713
  5. TEMESTA [Concomitant]
  6. BEVACIZUMAB. [Suspect]
     Active Substance: BEVACIZUMAB
     Indication: PLEURAL MESOTHELIOMA MALIGNANT
     Dosage: DATE OF MOST RECENT DOSE OF BEVACIZUMAB  ADMINISTRATION BEFORE SAE: 18/NOV/2020
     Route: 042
     Dates: start: 20200713

REACTIONS (1)
  - Seizure [Recovered/Resolved]

NARRATIVE: CASE EVENT DATE: 20201205
